FAERS Safety Report 18746078 (Version 2)
Quarter: 2021Q1

REPORT INFORMATION
  Report Type: Other
  Country: US (occurrence: US)
  Receive Date: 20210115
  Receipt Date: 20210215
  Transmission Date: 20210419
  Serious: Yes (Other)
  Sender: FDA-Public Use
  Company Number: US-ROCHE-2749878

PATIENT
  Sex: Female

DRUGS (12)
  1. XOLAIR [Suspect]
     Active Substance: OMALIZUMAB
     Indication: ASTHMA
  2. XOLAIR [Suspect]
     Active Substance: OMALIZUMAB
  3. XOLAIR [Suspect]
     Active Substance: OMALIZUMAB
  4. XOLAIR [Suspect]
     Active Substance: OMALIZUMAB
     Indication: DYSPNOEA
  5. XOLAIR [Suspect]
     Active Substance: OMALIZUMAB
     Indication: ASTHMA
     Route: 058
  6. XOLAIR [Suspect]
     Active Substance: OMALIZUMAB
     Indication: ASTHMA
  7. XOLAIR [Suspect]
     Active Substance: OMALIZUMAB
  8. XOLAIR [Suspect]
     Active Substance: OMALIZUMAB
  9. XOLAIR [Suspect]
     Active Substance: OMALIZUMAB
  10. XOLAIR [Suspect]
     Active Substance: OMALIZUMAB
  11. XOLAIR [Suspect]
     Active Substance: OMALIZUMAB
  12. XOLAIR [Suspect]
     Active Substance: OMALIZUMAB

REACTIONS (1)
  - Asthma [Unknown]
